FAERS Safety Report 8217002-X (Version None)
Quarter: 2012Q1

REPORT INFORMATION
  Report Type: 
  Country: None (occurrence: None)
  Receive Date: 20120319
  Receipt Date: 20120309
  Transmission Date: 20120608
  Serious: Yes (Hospitalization)
  Sender: FDA-Public Use
  Company Number: US-BIOGENIDEC-2012BI007037

PATIENT
  Age: 60 Year
  Sex: Female

DRUGS (6)
  1. AVONEX [Suspect]
     Route: 030
     Dates: start: 20090801
  2. METHYLPREDNISOLONE ACETATE [Concomitant]
     Route: 042
  3. AVONEX [Suspect]
     Route: 030
     Dates: start: 20041115, end: 20050216
  4. METHYLPREDNISOLONE ACETATE [Concomitant]
     Route: 042
  5. AVONEX [Suspect]
     Indication: MULTIPLE SCLEROSIS
     Route: 030
     Dates: start: 20000215, end: 20041011
  6. AVONEX [Suspect]
     Route: 030
     Dates: start: 20091030

REACTIONS (2)
  - SYNOVIAL CYST [None]
  - IMPAIRED HEALING [None]
